FAERS Safety Report 7754366-5 (Version None)
Quarter: 2011Q3

REPORT INFORMATION
  Report Type: 
  Country: None (occurrence: None)
  Receive Date: 20110915
  Receipt Date: 20110912
  Transmission Date: 20111222
  Serious: Yes (Hospitalization, Other)
  Sender: FDA-Public Use
  Company Number: US-PFIZER INC-A007222

PATIENT
  Sex: Female
  Weight: 53.52 kg

DRUGS (5)
  1. LIPITOR [Suspect]
     Indication: BLOOD CHOLESTEROL INCREASED
     Dosage: UNK
     Route: 048
     Dates: start: 19980501
  2. ATIVAN [Concomitant]
     Dosage: UNK
  3. LASIX [Concomitant]
     Dosage: UNK
  4. CARDURA [Suspect]
     Indication: HYPERTENSION
     Dosage: 4 MG, 3X/DAY
     Route: 048
     Dates: start: 19980501
  5. PRILOSEC [Concomitant]
     Dosage: UNK
     Dates: start: 19980501

REACTIONS (4)
  - PULMONARY OEDEMA [None]
  - WEIGHT INCREASED [None]
  - CARDIAC FAILURE CHRONIC [None]
  - MYOCARDIAL ISCHAEMIA [None]
